FAERS Safety Report 6731724-9 (Version None)
Quarter: 2010Q2

REPORT INFORMATION
  Report Type: 
  Country: None (occurrence: None)
  Receive Date: 20100518
  Receipt Date: 20100518
  Transmission Date: 20101027
  Serious: Yes (Hospitalization)
  Sender: FDA-Public Use
  Company Number: None

PATIENT
  Sex: Female
  Weight: 84 kg

DRUGS (2)
  1. TAXOL [Suspect]
     Dosage: 148 MG
     Dates: end: 20100503
  2. HERCEPTIN [Suspect]
     Dosage: 336 MG
     Dates: end: 20100503

REACTIONS (6)
  - DYSPNOEA [None]
  - HAEMOGLOBIN DECREASED [None]
  - HYPERTENSION [None]
  - MUSCULOSKELETAL CHEST PAIN [None]
  - PANCYTOPENIA [None]
  - REFUSAL OF TREATMENT BY PATIENT [None]
